FAERS Safety Report 24126117 (Version 1)
Quarter: 2024Q3

REPORT INFORMATION
  Report Type: Spontaneous
  Country: US (occurrence: None)
  Receive Date: 20240722
  Receipt Date: 20240722
  Transmission Date: 20241016
  Serious: Yes (Hospitalization)
  Sender: Public
  Company Number: None

PATIENT
  Age: 75 Year
  Sex: Female

DRUGS (2)
  1. OMNITROPE [Suspect]
     Active Substance: SOMATROPIN
     Indication: Hormone level abnormal
     Dosage: FREQUENCY : DAILY;?
     Route: 058
     Dates: start: 20230128
  2. OMNITROPE [Suspect]
     Active Substance: SOMATROPIN
     Indication: Hypothalamo-pituitary disorder

REACTIONS (3)
  - Cerebrovascular accident [None]
  - Heart rate decreased [None]
  - Cardiac output decreased [None]

NARRATIVE: CASE EVENT DATE: 20240625
